FAERS Safety Report 10461814 (Version 2)
Quarter: 2014Q4

REPORT INFORMATION
  Report Type: Spontaneous
  Country: US (occurrence: None)
  Receive Date: 20140916
  Receipt Date: 20141010
  Transmission Date: 20150528
  Serious: No
  Sender: FDA-Public Use
  Company Number: ABR_01815_2014

PATIENT
  Sex: Female
  Weight: 66.68 kg

DRUGS (1)
  1. ERYTHROCIN STEARATE [Suspect]
     Active Substance: ERYTHROMYCIN STEARATE
     Indication: BRONCHITIS
     Route: 048
     Dates: start: 20140826, end: 20140902

REACTIONS (8)
  - Muscle spasms [None]
  - Diarrhoea [None]
  - Blood glucose increased [None]
  - Urinary incontinence [None]
  - Lip swelling [None]
  - Neuralgia [None]
  - Neuropathy peripheral [None]
  - Gastrointestinal disorder [None]
